FAERS Safety Report 8426508-X (Version None)
Quarter: 2012Q2

REPORT INFORMATION
  Report Type: 
  Country: None (occurrence: None)
  Receive Date: 20120611
  Receipt Date: 20120606
  Transmission Date: 20120825
  Serious: Yes (Death, Other)
  Sender: FDA-Public Use
  Company Number: CN-BAYER-2012-056517

PATIENT
  Age: 53 Year
  Sex: Male

DRUGS (2)
  1. HEPARIN [Concomitant]
     Dosage: 8000 U, UNK
     Route: 042
     Dates: start: 20120329, end: 20120329
  2. ULTRAVIST 370 [Suspect]
     Indication: PERCUTANEOUS CORONARY INTERVENTION
     Dosage: 150 ML, ONCE
     Route: 042
     Dates: start: 20120329, end: 20120329

REACTIONS (4)
  - EYELID OEDEMA [None]
  - DEATH [None]
  - BLOOD PRESSURE DECREASED [None]
  - URTICARIA [None]
